FAERS Safety Report 26069295 (Version 1)
Quarter: 2025Q4

REPORT INFORMATION
  Report Type: Spontaneous
  Country: US (occurrence: None)
  Receive Date: 20251119
  Receipt Date: 20251119
  Transmission Date: 20260118
  Serious: Yes (Life-Threatening, Hospitalization)
  Sender: FDA-CTU
  Company Number: None

PATIENT
  Age: 64 Year
  Sex: Female
  Weight: 77.4 kg

DRUGS (9)
  1. KISQALI [Suspect]
     Active Substance: RIBOCICLIB SUCCINATE
     Indication: Breast cancer
     Dates: start: 20250707, end: 20250902
  2. PREDNISONE [Concomitant]
     Active Substance: PREDNISONE
  3. NIFEdipine 30 mg sr [Concomitant]
  4. LETROZOLE [Concomitant]
     Active Substance: LETROZOLE
  5. Lisinopril 40 mg tab [Concomitant]
  6. hydrochlorothiazide 25 mb [Concomitant]
  7. potassium chloride Er 10 meq cap [Concomitant]
  8. PROLIA [Concomitant]
     Active Substance: DENOSUMAB
  9. DEVICE [Concomitant]
     Active Substance: DEVICE

REACTIONS (3)
  - Hepatic enzyme increased [None]
  - Therapy cessation [None]
  - Drug-induced liver injury [None]

NARRATIVE: CASE EVENT DATE: 20251015
